FAERS Safety Report 20617445 (Version 1)
Quarter: 2022Q1

REPORT INFORMATION
  Report Type: Spontaneous
  Country: PT (occurrence: PT)
  Receive Date: 20220321
  Receipt Date: 20220321
  Transmission Date: 20220423
  Serious: Yes (Other)
  Sender: FDA-Public Use
  Company Number: PT-MYLANLABS-2022M1021319

PATIENT
  Age: 2 Year
  Sex: Male

DRUGS (6)
  1. FLUTICASONE PROPIONATE\SALMETEROL XINAFOATE [Suspect]
     Active Substance: FLUTICASONE PROPIONATE\SALMETEROL XINAFOATE
     Indication: Wheezing
     Dosage: UNK UNK, QD
  2. MOMETASONE [Suspect]
     Active Substance: MOMETASONE
     Indication: Skin lesion
     Dosage: UNK
     Route: 061
  3. METHYLPREDNISOLONE ACEPONATE [Suspect]
     Active Substance: METHYLPREDNISOLONE ACEPONATE
     Indication: Skin lesion
     Dosage: UNK
     Route: 061
  4. MONTELUKAST [Concomitant]
     Active Substance: MONTELUKAST SODIUM
     Indication: Wheezing
     Dosage: UNK
     Route: 048
  5. ALBUTEROL [Concomitant]
     Active Substance: ALBUTEROL
     Indication: Wheezing
     Dosage: UNK
  6. MUPIROCIN [Concomitant]
     Active Substance: MUPIROCIN
     Indication: Skin lesion
     Dosage: UNK
     Route: 061

REACTIONS (1)
  - Perioral dermatitis [Recovered/Resolved]
